FAERS Safety Report 7120594-5 (Version None)
Quarter: 2010Q4

REPORT INFORMATION
  Report Type: 
  Country: None (occurrence: None)
  Receive Date: 20101124
  Receipt Date: 20101112
  Transmission Date: 20110411
  Serious: Yes (Hospitalization)
  Sender: FDA-Public Use
  Company Number: US-CELGENEUS-163-21880-10110169

PATIENT
  Sex: Female
  Weight: 66.284 kg

DRUGS (19)
  1. REVLIMID [Suspect]
     Route: 048
     Dates: start: 20100921, end: 20101029
  2. REVLIMID [Suspect]
     Route: 048
     Dates: start: 20101031
  3. RITUXIMAB [Suspect]
     Route: 065
     Dates: start: 20101019, end: 20101026
  4. IMMUNE GLOBULIN INTRAVENOUS (HUMAN) [Concomitant]
     Route: 065
  5. LISINOPRIL [Concomitant]
     Route: 048
     Dates: end: 20100101
  6. BUMEX [Concomitant]
     Route: 048
  7. SYNTHROID [Concomitant]
     Route: 048
     Dates: start: 20101029
  8. AMBIEN [Concomitant]
     Dosage: 5-10MG
     Route: 048
  9. ALLOPURINOL [Concomitant]
     Route: 048
  10. ASPIRIN [Concomitant]
     Route: 048
  11. PHOSPHORUS [Concomitant]
     Route: 051
     Dates: start: 20101029
  12. MEDROL [Concomitant]
     Dosage: DOSE-PAK
     Route: 051
     Dates: start: 20101029
  13. LEVAQUIN [Concomitant]
     Route: 048
     Dates: start: 20101028, end: 20100101
  14. SOLU-MEDROL [Concomitant]
     Route: 051
     Dates: start: 20101001, end: 20100101
  15. BENADRYL [Concomitant]
     Route: 065
  16. POTASSIUM PHOSPHATES [Concomitant]
     Dosage: 155-852-130MG
     Route: 048
     Dates: start: 20101029
  17. ZOVIRAX [Concomitant]
     Route: 061
  18. FAMOTIDINE [Concomitant]
     Route: 048
  19. LORATADINE [Concomitant]
     Route: 048

REACTIONS (6)
  - ASTHENIA [None]
  - DIARRHOEA [None]
  - HYPOPHOSPHATAEMIA [None]
  - HYPOTENSION [None]
  - RHEUMATOID ARTHRITIS [None]
  - TUMOUR FLARE [None]
